FAERS Safety Report 18147150 (Version 5)
Quarter: 2020Q4

REPORT INFORMATION
  Report Type: Report from Study
  Country: CA (occurrence: CA)
  Receive Date: 20200813
  Receipt Date: 20201230
  Transmission Date: 20210113
  Serious: Yes (Death, Hospitalization, Other)
  Sender: FDA-Public Use
  Company Number: PHHY2014CA060617

PATIENT
  Age: 47 Year
  Sex: Female

DRUGS (3)
  1. SANDOSTATIN LAR DEPOT [Suspect]
     Active Substance: OCTREOTIDE ACETATE
  2. SANDOSTATIN LAR DEPOT [Suspect]
     Active Substance: OCTREOTIDE ACETATE
     Indication: NEUROENDOCRINE TUMOUR
     Dosage: 30 MG, QMO
     Route: 030
     Dates: start: 20140415, end: 20200806
  3. SANDOSTATIN LAR DEPOT [Suspect]
     Active Substance: OCTREOTIDE ACETATE

REACTIONS (15)
  - Nervousness [Unknown]
  - Stress cardiomyopathy [Unknown]
  - Injection site pain [Unknown]
  - Death [Fatal]
  - Fatigue [Unknown]
  - Constipation [Unknown]
  - Needle issue [Unknown]
  - Blood pressure diastolic increased [Unknown]
  - Body temperature decreased [Unknown]
  - Injection site discomfort [Unknown]
  - Nausea [Unknown]
  - Abdominal discomfort [Recovering/Resolving]
  - Blood pressure increased [Recovering/Resolving]
  - Malignant neoplasm progression [Unknown]
  - Feeling abnormal [Unknown]

NARRATIVE: CASE EVENT DATE: 201404
